FAERS Safety Report 6048091-9 (Version None)
Quarter: 2009Q1

REPORT INFORMATION
  Report Type: 
  Country: None (occurrence: None)
  Receive Date: 20090123
  Receipt Date: 20090115
  Transmission Date: 20090719
  Serious: Yes (Hospitalization)
  Sender: FDA-Public Use
  Company Number: PHHY2008JP32476

PATIENT
  Sex: Female
  Weight: 48 kg

DRUGS (7)
  1. ZOMETA [Suspect]
     Indication: METASTASES TO BONE
     Dosage: 4 MG EVERY 4 WEEKS
     Route: 042
     Dates: start: 20060701, end: 20080617
  2. AREDIA [Suspect]
     Indication: METASTASES TO BONE
     Dosage: 60 MG EVERY 4 WEEKS
     Route: 042
     Dates: start: 20050701, end: 20060601
  3. TS 1 [Suspect]
     Route: 048
  4. ARTIST [Concomitant]
     Route: 048
  5. LIPITOR [Concomitant]
     Route: 048
  6. CONIEL [Concomitant]
     Route: 048
  7. RIZE [Concomitant]
     Route: 048

REACTIONS (9)
  - ABSCESS [None]
  - ABSCESS DRAINAGE [None]
  - BONE DISORDER [None]
  - DECUBITUS ULCER [None]
  - OSTEOMYELITIS [None]
  - OSTEONECROSIS [None]
  - PRIMARY SEQUESTRUM [None]
  - SEQUESTRECTOMY [None]
  - SWELLING [None]
